FAERS Safety Report 12788589 (Version 1)
Quarter: 2016Q3

REPORT INFORMATION
  Report Type: Report from Study
  Country: BR (occurrence: BR)
  Receive Date: 20160928
  Receipt Date: 20160928
  Transmission Date: 20161109
  Serious: Yes (Hospitalization, Other)
  Sender: FDA-Public Use
  Company Number: BR-BAYER-2016-150347

PATIENT
  Age: 61 Year
  Sex: Male

DRUGS (1)
  1. BETAFERON [Suspect]
     Active Substance: INTERFERON BETA-1B
     Indication: MULTIPLE SCLEROSIS
     Dosage: 1 ML, QOD
     Dates: start: 1994, end: 20160728

REACTIONS (11)
  - Poisoning [None]
  - Pain [Not Recovered/Not Resolved]
  - Dermatitis allergic [None]
  - Restlessness [Not Recovered/Not Resolved]
  - Tremor [None]
  - Skin exfoliation [None]
  - Mobility decreased [None]
  - Hepatic lesion [Recovering/Resolving]
  - Miliaria [None]
  - Swelling [None]
  - Therapeutic response unexpected [None]

NARRATIVE: CASE EVENT DATE: 2016
